FAERS Safety Report 4602669-5 (Version None)
Quarter: 2005Q1

REPORT INFORMATION
  Report Type: 
  Country: None (occurrence: None)
  Receive Date: 20050307
  Receipt Date: 20050223
  Transmission Date: 20050727
  Serious: Yes (Other)
  Sender: FDA-Public Use
  Company Number: S05-USA-01033-01

PATIENT
  Age: 42 Year
  Sex: Male

DRUGS (1)
  1. LEXAPRO [Suspect]
     Dosage: 10 MG QD PO
     Route: 048

REACTIONS (1)
  - CONVULSION [None]
